FAERS Safety Report 14440844 (Version 1)
Quarter: 2018Q1

REPORT INFORMATION
  Report Type: Spontaneous
  Country: US (occurrence: US)
  Receive Date: 20180125
  Receipt Date: 20180125
  Transmission Date: 20180509
  Serious: No
  Sender: FDA-Public Use
  Company Number: US-AMGEN-USASP2017171455

PATIENT

DRUGS (2)
  1. PRALUENT [Concomitant]
     Active Substance: ALIROCUMAB
     Dosage: 75 MG, Q2WK
     Dates: start: 2016
  2. REPATHA [Suspect]
     Active Substance: EVOLOCUMAB
     Indication: PRODUCT USED FOR UNKNOWN INDICATION
     Dosage: 140 MG, UNK
     Route: 065

REACTIONS (3)
  - Lung disorder [Recovering/Resolving]
  - Cough [Recovered/Resolved]
  - Headache [Recovering/Resolving]
